FAERS Safety Report 4522343-3 (Version None)
Quarter: 2004Q4

REPORT INFORMATION
  Report Type: 
  Country: None (occurrence: None)
  Receive Date: 20041209
  Receipt Date: 20041203
  Transmission Date: 20050328
  Serious: Yes (Death, Hospitalization)
  Sender: FDA-Public Use
  Company Number: BR-GLAXOSMITHKLINE-A0536014A

PATIENT
  Age: 79 Year
  Sex: Male
  Weight: 70 kg

DRUGS (1)
  1. SERETIDE [Suspect]
     Indication: ASTHMA
     Route: 055

REACTIONS (1)
  - MYOCARDIAL INFARCTION [None]
